FAERS Safety Report 5473419-8 (Version None)
Quarter: 2007Q4

REPORT INFORMATION
  Report Type: 
  Country: None (occurrence: None)
  Receive Date: 20071001
  Receipt Date: 20070921
  Transmission Date: 20080405
  Serious: Yes (Hospitalization, Disabling, Other)
  Sender: FDA-Public Use
  Company Number: GB-BAUSCH-2007BL003458

PATIENT
  Age: 19 Year
  Sex: Female

DRUGS (7)
  1. GENTAMICIN SULFATE [Suspect]
     Indication: ANTI-INFECTIVE THERAPY
     Route: 042
     Dates: start: 20000601, end: 20000701
  2. GENTAMICIN SULFATE [Suspect]
     Route: 042
     Dates: start: 20000601, end: 20000701
  3. TOBRAMYCIN [Suspect]
     Indication: ANTI-INFECTIVE THERAPY
     Route: 042
     Dates: start: 20000701, end: 20000701
  4. TOBRAMYCIN [Suspect]
     Route: 042
     Dates: start: 20000701, end: 20000701
  5. AZITHROMYCIN [Concomitant]
     Indication: ANTIINFLAMMATORY THERAPY
  6. MEROPENEM [Concomitant]
     Indication: ANTI-INFECTIVE THERAPY
     Route: 065
     Dates: start: 20000601, end: 20000601
  7. MEROPENEM [Concomitant]
     Route: 065
     Dates: start: 20000701

REACTIONS (4)
  - BALANCE DISORDER [None]
  - DEAFNESS NEUROSENSORY [None]
  - DRUG TOXICITY [None]
  - RENAL FAILURE ACUTE [None]
